FAERS Safety Report 8244915-5 (Version None)
Quarter: 2012Q1

REPORT INFORMATION
  Report Type: 
  Country: None (occurrence: None)
  Receive Date: 20120329
  Receipt Date: 20110906
  Transmission Date: 20120608
  Serious: No
  Sender: FDA-Public Use
  Company Number: US-MYLANLABS-2011S1018741

PATIENT
  Age: 17 Year
  Sex: Female
  Weight: 113.4 kg

DRUGS (3)
  1. LAMICTAL [Concomitant]
  2. FENTANYL-100 [Suspect]
     Route: 062
     Dates: end: 20110906
  3. CELEXA [Concomitant]
     Indication: BIPOLAR DISORDER
     Route: 048

REACTIONS (2)
  - DIZZINESS [None]
  - INTENTIONAL DRUG MISUSE [None]
